FAERS Safety Report 5853214-8 (Version None)
Quarter: 2008Q3

REPORT INFORMATION
  Report Type: 
  Country: None (occurrence: None)
  Receive Date: 20080821
  Receipt Date: 20080814
  Transmission Date: 20090109
  Serious: Yes (Other)
  Sender: FDA-Public Use
  Company Number: US-PURDUE-USA_2008_0034239

PATIENT
  Age: 39 Year
  Sex: Male

DRUGS (1)
  1. OXYCONTIN [Suspect]
     Indication: PAIN
     Dosage: 40 MG, TID
     Route: 048
     Dates: start: 20071201

REACTIONS (13)
  - COLD SWEAT [None]
  - DIARRHOEA [None]
  - DISCOMFORT [None]
  - DRUG DEPENDENCE [None]
  - DRUG WITHDRAWAL SYNDROME [None]
  - FAECES HARD [None]
  - HAEMORRHAGE [None]
  - HEADACHE [None]
  - HYPERHIDROSIS [None]
  - INTENTIONAL DRUG MISUSE [None]
  - IRRITABILITY [None]
  - LARGE INTESTINE PERFORATION [None]
  - NAUSEA [None]
